FAERS Safety Report 8247456 (Version 3)
Quarter: 2014Q2

REPORT INFORMATION
  Report Type: Spontaneous
  Country: JP (occurrence: JP)
  Receive Date: 20111116
  Receipt Date: 20140610
  Transmission Date: 20141212
  Serious: Yes (Hospitalization)
  Sender: FDA-Public Use
  Company Number: JP-GLAXOSMITHKLINE-B0761922A

PATIENT
  Age: 38 Year
  Sex: Female
  Weight: 58 kg

DRUGS (5)
  1. LAMICTAL [Suspect]
     Indication: BIPOLAR DISORDER
     Dosage: 25MG TWICE PER DAY
     Route: 048
     Dates: start: 20111019, end: 20111108
  2. DEPAKENE [Suspect]
     Indication: BIPOLAR DISORDER
     Route: 048
     Dates: end: 20111108
  3. TOLEDOMIN [Concomitant]
     Indication: BIPOLAR DISORDER
     Route: 048
     Dates: end: 20111108
  4. SEPAZON [Concomitant]
     Indication: BIPOLAR DISORDER
     Route: 048
     Dates: end: 20111108
  5. ABILIFY [Concomitant]
     Indication: BIPOLAR DISORDER
     Route: 048
     Dates: end: 20111108

REACTIONS (22)
  - Stevens-Johnson syndrome [Recovering/Resolving]
  - Ocular hyperaemia [Unknown]
  - Conjunctivitis [Unknown]
  - Oral mucosa erosion [Unknown]
  - Lip erosion [Unknown]
  - Scab [Unknown]
  - White blood cell count increased [Unknown]
  - Neutrophil count increased [Unknown]
  - Lymphocyte count decreased [Unknown]
  - C-reactive protein increased [Unknown]
  - Eye pruritus [Unknown]
  - Eye discharge [Unknown]
  - Papule [Unknown]
  - Aspartate aminotransferase decreased [Unknown]
  - Alanine aminotransferase increased [Unknown]
  - Gamma-glutamyltransferase increased [Unknown]
  - Lymphadenopathy [Unknown]
  - Lymphocyte count increased [Unknown]
  - Lacrimation increased [Unknown]
  - Pyrexia [Unknown]
  - Vulvar erosion [Unknown]
  - Erythema multiforme [Recovering/Resolving]
